FAERS Safety Report 17215513 (Version 3)
Quarter: 2020Q4

REPORT INFORMATION
  Report Type: Report from Study
  Country: FR (occurrence: FR)
  Receive Date: 20191230
  Receipt Date: 20201210
  Transmission Date: 20210113
  Serious: Yes (Hospitalization, Other)
  Sender: FDA-Public Use
  Company Number: FR-MYLANLABS-2019M1128116

PATIENT
  Sex: Female

DRUGS (3)
  1. DEXAMETHASONE. [Suspect]
     Active Substance: DEXAMETHASONE
     Indication: PLASMA CELL MYELOMA
     Dosage: 20 UNK
     Route: 065
     Dates: start: 20171123, end: 20190425
  2. IXAZOMIB [Suspect]
     Active Substance: IXAZOMIB
     Indication: PLASMA CELL MYELOMA
     Dosage: UNK
     Route: 065
     Dates: start: 20171123, end: 20181025
  3. REVLIMID [Suspect]
     Active Substance: LENALIDOMIDE
     Indication: PLASMA CELL MYELOMA
     Dosage: 25 UNK
     Route: 065
     Dates: start: 20171023, end: 20190523

REACTIONS (16)
  - Neck pain [Recovering/Resolving]
  - Bronchitis viral [Recovered/Resolved]
  - Peripheral sensory neuropathy [Not Recovered/Not Resolved]
  - Neuropathy peripheral [Unknown]
  - Viral infection [Recovered/Resolved]
  - Crowned dens syndrome [Unknown]
  - Paraesthesia [Recovering/Resolving]
  - Erythema [Recovered/Resolved]
  - C-reactive protein increased [Unknown]
  - Lower respiratory tract infection viral [Recovered/Resolved]
  - Arthralgia [Not Recovered/Not Resolved]
  - Chondrocalcinosis [Recovering/Resolving]
  - Peripheral nerve lesion [Unknown]
  - Productive cough [Recovered/Resolved]
  - Inflammation [Unknown]
  - Diarrhoea [Unknown]

NARRATIVE: CASE EVENT DATE: 20171201
